FAERS Safety Report 8515506-3 (Version None)
Quarter: 2012Q3

REPORT INFORMATION
  Report Type: 
  Country: None (occurrence: None)
  Receive Date: 20120717
  Receipt Date: 20120514
  Transmission Date: 20120928
  Serious: No
  Sender: FDA-Public Use
  Company Number: US-009507513-1207USA002395

PATIENT

DRUGS (2)
  1. LOTRIMIN AF [Suspect]
     Indication: MEDICAL OBSERVATION
  2. LOTRIMIN AF [Suspect]
     Indication: PRODUCT USED FOR UNKNOWN INDICATION
     Dosage: UNK, UNKNOWN
     Route: 061

REACTIONS (1)
  - DRUG INEFFECTIVE [None]
